FAERS Safety Report 8257958-2 (Version None)
Quarter: 2012Q1

REPORT INFORMATION
  Report Type: 
  Country: None (occurrence: None)
  Receive Date: 20111211
  Receipt Date: 20110913
  Transmission Date: 20120608
  Serious: No
  Sender: FDA-Public Use
  Company Number: 201109032

PATIENT
  Age: 63 Year
  Sex: Female

DRUGS (2)
  1. XIAFLEX (CLOSTRIDIAL COLLAGENASE) [Suspect]
     Indication: DUPUYTREN'S CONTRACTURE
     Dosage: 1 IN 1 D,INTRALESIONAL ; 1 IN 1 D,INTRALESIONAL
     Route: 026
     Dates: start: 20110208, end: 20110208
  2. XIAFLEX (CLOSTRIDIAL COLLAGENASE) [Suspect]
     Indication: DUPUYTREN'S CONTRACTURE
     Dosage: 1 IN 1 D,INTRALESIONAL ; 1 IN 1 D,INTRALESIONAL
     Route: 026
     Dates: start: 20110608, end: 20110608

REACTIONS (1)
  - PAIN IN EXTREMITY [None]
